FAERS Safety Report 6008892-X (Version None)
Quarter: 2008Q4

REPORT INFORMATION
  Report Type: 
  Country: None (occurrence: None)
  Receive Date: 20081217
  Receipt Date: 20080321
  Transmission Date: 20090506
  Serious: Yes (Hospitalization)
  Sender: FDA-Public Use
  Company Number: US-BAXTER-2008BH011605

PATIENT
  Age: 68 Year
  Sex: Female

DRUGS (4)
  1. GAMMAGARD LIQUID [Suspect]
     Indication: DERMATOMYOSITIS
     Dosage: DOSE UNIT:UNKNOWN
     Route: 042
     Dates: start: 20071101
  2. CARIMUNE NF [Suspect]
     Indication: DERMATOMYOSITIS
     Dosage: DOSE UNIT:UNKNOWN
     Route: 065
     Dates: start: 20071101
  3. ACETAMINOPHEN [Concomitant]
     Indication: PREMEDICATION
     Route: 065
  4. DIPHENHYDRAMINE HCL [Concomitant]
     Indication: PREMEDICATION
     Route: 065

REACTIONS (2)
  - ADVERSE EVENT [None]
  - DRUG INTOLERANCE [None]
